FAERS Safety Report 5879053-X (Version None)
Quarter: 2008Q3

REPORT INFORMATION
  Report Type: 
  Country: None (occurrence: None)
  Receive Date: 20080912
  Receipt Date: 20080908
  Transmission Date: 20090109
  Serious: Yes (Disabling, Other)
  Sender: FDA-Public Use
  Company Number: PHEH2008US06273

PATIENT
  Sex: Female

DRUGS (2)
  1. RECLAST [Suspect]
     Indication: OSTEOPOROSIS POSTMENOPAUSAL
     Dosage: 5 MG ONCE YEARLY
     Dates: start: 20071018
  2. AREDIA [Suspect]
     Indication: OSTEOPOROSIS
     Dosage: 90 MG, Q3MO
     Route: 042
     Dates: start: 20050419, end: 20080622

REACTIONS (4)
  - DENTAL OPERATION [None]
  - JAW DISORDER [None]
  - OSTEONECROSIS [None]
  - TOOTHACHE [None]
